FAERS Safety Report 9833033 (Version 1)
Quarter: 2014Q1

REPORT INFORMATION
  Report Type: Spontaneous
  Country: GB (occurrence: GB)
  Receive Date: 20140121
  Receipt Date: 20140121
  Transmission Date: 20141002
  Serious: Yes (Disabling, Other)
  Sender: FDA-Public Use
  Company Number: GB-PFIZER INC-2014015251

PATIENT
  Age: 73 Year
  Sex: Male

DRUGS (10)
  1. PAMIDRONATE DISODIUM [Suspect]
     Indication: BONE PAIN
     Dosage: 90 MG, MONTHLY
     Route: 042
  2. ZOMETA [Suspect]
     Indication: BONE PAIN
     Dosage: 4 MG, MONTHLY
     Route: 042
  3. CLEXANE [Concomitant]
     Dosage: UNK
  4. DEXAMETHASONE [Concomitant]
     Dosage: 4 MG, 1X/DAY
  5. FUROSEMIDE [Concomitant]
     Dosage: 40 MG, 1X/DAY
  6. METOCLOPRAMIDE [Concomitant]
     Dosage: 10 MG, 3X/DAY
  7. OMEPRAZOLE [Concomitant]
     Dosage: 20 MG, 1X/DAY
  8. OXYCODONE [Concomitant]
     Dosage: 200 MG, 2X/DAY
  9. PARACETAMOL [Concomitant]
     Dosage: 1 G, 3X/DAY
  10. GABAPENTIN [Concomitant]
     Dosage: UNK

REACTIONS (3)
  - Osteonecrosis of jaw [Not Recovered/Not Resolved]
  - Exposed bone in jaw [Not Recovered/Not Resolved]
  - Tooth extraction [Unknown]
